FAERS Safety Report 9244447 (Version 2)
Quarter: 2013Q2

REPORT INFORMATION
  Report Type: Spontaneous
  Country: IE (occurrence: IE)
  Receive Date: 20130422
  Receipt Date: 20130515
  Transmission Date: 20140414
  Serious: Yes (Other)
  Sender: FDA-Public Use
  Company Number: IE-MILLENNIUM PHARMACEUTICALS, INC.-2013-02886

PATIENT
  Sex: 0

DRUGS (11)
  1. VELCADE [Suspect]
     Indication: PLASMA CELL MYELOMA
     Dosage: 1.8 MG/M2, UNK
     Route: 042
     Dates: start: 20101004
  2. XANAX [Concomitant]
  3. CARDICOR [Concomitant]
  4. PARACETAMOL [Concomitant]
  5. NEORECORMON [Concomitant]
  6. ELTROXIN [Concomitant]
  7. GASTER                             /00706001/ [Concomitant]
  8. THALIDOMIDE [Concomitant]
  9. VALTREX [Concomitant]
  10. INNOHEP                            /00889602/ [Concomitant]
  11. LOSEC                              /00661201/ [Concomitant]

REACTIONS (2)
  - Tachycardia [Unknown]
  - Joint swelling [Unknown]
